FAERS Safety Report 9078887 (Version 1)
Quarter: 2013Q1

REPORT INFORMATION
  Report Type: Spontaneous
  Country: FR (occurrence: FR)
  Receive Date: 20130130
  Receipt Date: 20130130
  Transmission Date: 20140127
  Serious: Yes (Other)
  Sender: FDA-Public Use
  Company Number: FR-TEVA-382409ISR

PATIENT
  Age: 44 Year
  Sex: Female

DRUGS (3)
  1. ALPRAZOLAM [Suspect]
     Route: 065
  2. ETIFOXINE [Suspect]
     Route: 065
  3. ESCITALOPRAM [Suspect]
     Route: 065

REACTIONS (1)
  - Hepatitis acute [Recovering/Resolving]
